FAERS Safety Report 8118699-5 (Version None)
Quarter: 2012Q1

REPORT INFORMATION
  Report Type: 
  Country: None (occurrence: None)
  Receive Date: 20120207
  Receipt Date: 20120201
  Transmission Date: 20120608
  Serious: Yes (Hospitalization)
  Sender: FDA-Public Use
  Company Number: JP-SANOFI-AVENTIS-2011SA077921

PATIENT
  Age: 78 Year
  Sex: Male
  Weight: 60 kg

DRUGS (16)
  1. ASPIRIN [Concomitant]
     Indication: ACUTE MYOCARDIAL INFARCTION
     Route: 048
     Dates: start: 20100404, end: 20100404
  2. CLEANAL [Concomitant]
     Route: 048
     Dates: start: 20100407
  3. HEPARIN [Concomitant]
     Dosage: DOSE:15000 UNIT(S)
     Route: 042
     Dates: start: 20100404, end: 20100406
  4. DOPAMINE HCL [Concomitant]
     Dosage: STRENGTH:0.3%
     Dates: start: 20100406, end: 20100415
  5. GLUCOBAY [Concomitant]
     Route: 048
     Dates: start: 20100407
  6. FUROSEMIDE [Concomitant]
     Route: 048
     Dates: start: 20100416
  7. PLAVIX [Suspect]
     Indication: ACUTE MYOCARDIAL INFARCTION
     Dosage: LOADING TREATMENT
     Route: 065
     Dates: start: 20100404, end: 20100404
  8. HEPARIN [Concomitant]
     Indication: ACUTE MYOCARDIAL INFARCTION
     Dosage: DOSE:8000 UNIT(S)
     Route: 042
     Dates: start: 20100404, end: 20100404
  9. DOBUTAMINE HCL [Concomitant]
     Dosage: STRENGTH:0.3%
     Dates: start: 20100408, end: 20100415
  10. ASPIRIN [Concomitant]
     Route: 048
     Dates: start: 20100405
  11. CARVEDILOL [Concomitant]
     Route: 048
     Dates: start: 20100426
  12. WARFARIN SODIUM [Concomitant]
     Route: 048
     Dates: start: 20100422
  13. CARVEDILOL [Concomitant]
     Route: 048
     Dates: start: 20100423, end: 20100425
  14. PLAVIX [Suspect]
     Route: 065
     Dates: start: 20100405
  15. CARVEDILOL [Concomitant]
     Indication: ACUTE MYOCARDIAL INFARCTION
     Route: 048
     Dates: start: 20100406, end: 20100415
  16. METHYCOBAL [Concomitant]
     Route: 048
     Dates: start: 20100412

REACTIONS (1)
  - CARDIAC FAILURE CONGESTIVE [None]
